FAERS Safety Report 19242898 (Version 3)
Quarter: 2021Q2

REPORT INFORMATION
  Report Type: Report from Study
  Country: ES (occurrence: ES)
  Receive Date: 20210510
  Receipt Date: 20210618
  Transmission Date: 20210717
  Serious: Yes (Hospitalization, Other)
  Sender: FDA-Public Use
  Company Number: ES-BAUSCH-BL-2021-015863

PATIENT
  Age: 65 Year
  Sex: Male
  Weight: 96 kg

DRUGS (5)
  1. POMALIDOMIDE [Suspect]
     Active Substance: POMALIDOMIDE
     Indication: PLASMA CELL MYELOMA
     Dosage: CYCLE 1
     Route: 065
     Dates: start: 20200722
  2. FILGRASTIM [Concomitant]
     Active Substance: FILGRASTIM
     Indication: PANCYTOPENIA
     Route: 065
     Dates: start: 20200827
  3. DEXAMETHASONE. [Suspect]
     Active Substance: DEXAMETHASONE
     Indication: PLASMA CELL MYELOMA
     Dosage: CYCLE 1
     Route: 065
     Dates: start: 20200722
  4. ARANESP [Concomitant]
     Active Substance: DARBEPOETIN ALFA
     Indication: ANAEMIA
     Route: 065
     Dates: start: 20200805
  5. DARATUMUMAB [Suspect]
     Active Substance: DARATUMUMAB
     Indication: PLASMA CELL MYELOMA
     Dosage: CYCLE 1
     Route: 042
     Dates: start: 20200722

REACTIONS (4)
  - Febrile neutropenia [Recovered/Resolved]
  - Staphylococcal infection [Unknown]
  - Plasma cell myeloma [Unknown]
  - Renal failure [Recovered/Resolved with Sequelae]

NARRATIVE: CASE EVENT DATE: 20200811
